FAERS Safety Report 7944722-4 (Version None)
Quarter: 2011Q4

REPORT INFORMATION
  Report Type: 
  Country: None (occurrence: None)
  Receive Date: 20111114
  Receipt Date: 20110831
  Transmission Date: 20120403
  Serious: No
  Sender: FDA-Public Use
  Company Number: 1000023402

PATIENT
  Age: 57 Year
  Sex: Female

DRUGS (7)
  1. SAVELLA [Suspect]
     Indication: FIBROMYALGIA
     Dosage: 12.5 MG (12.5 MG, 1 IN 1 D), ORAL;12.5 MG (12.5 MG, 2  IN 1 D), ORAL; 25 MG BID (25 MG, 2 IN 1 D),
     Route: 048
     Dates: start: 20110818, end: 20110819
  2. SAVELLA [Suspect]
     Indication: FIBROMYALGIA
     Dosage: 12.5 MG (12.5 MG, 1 IN 1 D), ORAL;12.5 MG (12.5 MG, 2  IN 1 D), ORAL; 25 MG BID (25 MG, 2 IN 1 D),
     Route: 048
     Dates: start: 20110820, end: 20110823
  3. SAVELLA [Suspect]
     Indication: FIBROMYALGIA
     Dosage: 12.5 MG (12.5 MG, 1 IN 1 D), ORAL;12.5 MG (12.5 MG, 2  IN 1 D), ORAL; 25 MG BID (25 MG, 2 IN 1 D),
     Route: 048
     Dates: start: 20110817, end: 20110817
  4. PRAVASTATIN [Concomitant]
  5. SAVELLA [Suspect]
     Indication: FIBROMYALGIA
     Dosage: 50 MG BID (50 MG, 2 IN 1 D), ORAL
     Route: 048
     Dates: start: 20110824, end: 20110827
  6. BENAZEPRIL (BENAZEPRIL) 10 MILLIGRAM, TABLETS) (BENAZEPRIL) [Concomitant]
  7. SAVELLA [Suspect]
     Indication: FIBROMYALGIA
     Dosage: 25 MG BID (25 MG, 2 IN 1 D), ORAL
     Route: 048
     Dates: start: 20110828, end: 20110831

REACTIONS (1)
  - BLOOD PRESSURE INCREASED [None]
